FAERS Safety Report 13763317 (Version 6)
Quarter: 2018Q2

REPORT INFORMATION
  Report Type: Spontaneous
  Country: JP (occurrence: JP)
  Receive Date: 20170718
  Receipt Date: 20180406
  Transmission Date: 20180711
  Serious: Yes (Death, Other)
  Sender: FDA-Public Use
  Company Number: JP-009507513-1707JPN000378J

PATIENT
  Age: 68 Year
  Sex: Male
  Weight: 62 kg

DRUGS (2)
  1. MAGMITT [Suspect]
     Active Substance: MAGNESIUM OXIDE
     Dosage: UNK
     Route: 048
  2. KEYTRUDA [Suspect]
     Active Substance: PEMBROLIZUMAB
     Indication: LUNG ADENOCARCINOMA
     Dosage: 200 MG, Q3W
     Route: 041
     Dates: start: 20170608, end: 20170629

REACTIONS (4)
  - Vomiting [Unknown]
  - Malaise [Unknown]
  - Diarrhoea [Not Recovered/Not Resolved]
  - Sudden death [Fatal]

NARRATIVE: CASE EVENT DATE: 2017
